FAERS Safety Report 7488131-3 (Version None)
Quarter: 2011Q2

REPORT INFORMATION
  Report Type: 
  Country: None (occurrence: None)
  Receive Date: 20110518
  Receipt Date: 20110513
  Transmission Date: 20111010
  Serious: Yes (Other)
  Sender: FDA-Public Use
  Company Number: US-ROCHE-762437

PATIENT
  Sex: Female
  Weight: 62.6 kg

DRUGS (2)
  1. HYDROCODONE BITARTRATE [Concomitant]
     Indication: FIBROMYALGIA
     Dosage: REPORTED AS ^CD HYDROCODONE ER^
     Route: 048
     Dates: start: 20080101
  2. TAMIFLU [Suspect]
     Indication: INFLUENZA
     Route: 048
     Dates: start: 20110125, end: 20110130

REACTIONS (7)
  - DERMATITIS ATOPIC [None]
  - BLISTER [None]
  - BURNING SENSATION [None]
  - BLINDNESS UNILATERAL [None]
  - SWELLING FACE [None]
  - AMNESIA [None]
  - CONFUSIONAL STATE [None]
